FAERS Safety Report 7734761-0 (Version None)
Quarter: 2011Q3

REPORT INFORMATION
  Report Type: 
  Country: None (occurrence: None)
  Receive Date: 20110907
  Receipt Date: 20110802
  Transmission Date: 20111222
  Serious: No
  Sender: FDA-Public Use
  Company Number: US-BAYER-2011-070486

PATIENT
  Age: -1 Year
  Sex: Female

DRUGS (1)
  1. ALEVE (CAPLET) [Suspect]
     Indication: BACK PAIN
     Dosage: 1 DF, ONCE
     Route: 065
     Dates: start: 20110802, end: 20110802

REACTIONS (3)
  - RASH ERYTHEMATOUS [None]
  - PRURITUS GENERALISED [None]
  - OEDEMA PERIPHERAL [None]
